FAERS Safety Report 4493930-6 (Version None)
Quarter: 2004Q4

REPORT INFORMATION
  Report Type: 
  Country: None (occurrence: None)
  Receive Date: 20041102
  Receipt Date: 20041014
  Transmission Date: 20050328
  Serious: Yes (Death, Hospitalization)
  Sender: FDA-Public Use
  Company Number: 04KOR0235

PATIENT
  Age: 68 Year
  Sex: Male

DRUGS (6)
  1. AGGRASTAT [Suspect]
     Indication: MYOCARDIAL INFARCTION
  2. CLOPIDOGREL BISULFATE (CLOPIDOGREL SULFATE) [Concomitant]
  3. ASPIRIN [Concomitant]
  4. FUROSEMIDE SODIUM (FUROSEMIDE SODIUM) [Concomitant]
  5. HEPARIN [Concomitant]
  6. NICORANDIL (NICORANDIL) [Concomitant]

REACTIONS (3)
  - CARDIAC FAILURE [None]
  - CARDIOGENIC SHOCK [None]
  - RENAL FAILURE [None]
